FAERS Safety Report 7964513-8 (Version None)
Quarter: 2011Q4

REPORT INFORMATION
  Report Type: 
  Country: None (occurrence: None)
  Receive Date: 20111208
  Receipt Date: 20111201
  Transmission Date: 20120403
  Serious: Yes (Other)
  Sender: FDA-Public Use
  Company Number: US-SANOFI-AVENTIS-2011SA079152

PATIENT
  Age: 72 Year
  Sex: Female
  Weight: 88 kg

DRUGS (1)
  1. PLAVIX [Suspect]
     Route: 048
     Dates: start: 20020501, end: 20111130

REACTIONS (4)
  - BODY HEIGHT DECREASED [None]
  - EPISTAXIS [None]
  - SINUSITIS [None]
  - ARTERIAL OCCLUSIVE DISEASE [None]
